FAERS Safety Report 11458944 (Version 2)
Quarter: 2015Q3

REPORT INFORMATION
  Report Type: Report from Study
  Country: HU (occurrence: HU)
  Receive Date: 20150904
  Receipt Date: 20150916
  Transmission Date: 20151125
  Serious: Yes (Death)
  Sender: FDA-Public Use
  Company Number: HU-ABBVIE-15P-076-1455552-00

PATIENT
  Age: 75 Year
  Sex: Female
  Weight: 31 kg

DRUGS (8)
  1. SPIRIVA [Concomitant]
     Active Substance: TIOTROPIUM BROMIDE MONOHYDRATE
     Indication: BRONCHITIS CHRONIC
     Route: 048
     Dates: start: 2010, end: 20150830
  2. DUODOPA [Suspect]
     Active Substance: CARBIDOPA\LEVODOPA
     Indication: PARKINSON^S DISEASE
     Dosage: AM DOSE: 7.0ML; CONT. DOSE: 1.9ML/H; E.D.:1.4ML
     Route: 050
     Dates: start: 20141020, end: 20150830
  3. CALCIVID [Concomitant]
     Indication: OSTEOPOROSIS
     Route: 048
     Dates: start: 20150830
  4. THEOSPIREX [Concomitant]
     Active Substance: THEOPHYLLINE ANHYDROUS
     Indication: BRONCHITIS CHRONIC
     Route: 048
     Dates: start: 201404, end: 20150830
  5. RIVOTRIL [Concomitant]
     Active Substance: CLONAZEPAM
     Indication: PARKINSON^S DISEASE
     Dosage: MORNING: 0.25MG; DAYTIME:0.25MG; EVENING: 2.0MG
     Route: 048
     Dates: start: 20150830
  6. BERODUAL [Concomitant]
     Active Substance: FENOTEROL HYDROBROMIDE\IPRATROPIUM BROMIDE
     Indication: BRONCHITIS CHRONIC
     Dosage: PRN
     Dates: start: 20150830
  7. VENTOLIN [Concomitant]
     Active Substance: ALBUTEROL SULFATE
     Indication: BRONCHITIS CHRONIC
     Dosage: 1 PRN
     Route: 048
  8. SEDRON [Concomitant]
     Indication: OSTEOPOROSIS
     Route: 048
     Dates: start: 20150830

REACTIONS (3)
  - Pneumonia [Fatal]
  - Fall [Fatal]
  - Injury [Fatal]

NARRATIVE: CASE EVENT DATE: 20150830
